FAERS Safety Report 21933402 (Version 1)
Quarter: 2023Q1

REPORT INFORMATION
  Report Type: Spontaneous
  Country: CN (occurrence: CN)
  Receive Date: 20230131
  Receipt Date: 20230131
  Transmission Date: 20230417
  Serious: Yes (Death, Other)
  Sender: FDA-Public Use
  Company Number: CN-SUN PHARMACEUTICAL INDUSTRIES LTD-2023R1-376131

PATIENT
  Age: 34 Year
  Sex: Female

DRUGS (5)
  1. CARBOPLATIN [Suspect]
     Active Substance: CARBOPLATIN
     Indication: Chemotherapy
     Dosage: UNK  (1 CYCLE)
     Route: 065
  2. PEMETREXED [Suspect]
     Active Substance: PEMETREXED
     Indication: Chemotherapy
     Dosage: UNK (1 CYCLE)
     Route: 065
  3. DABRAFENIB [Suspect]
     Active Substance: DABRAFENIB
     Indication: Chemotherapy
     Dosage: UNK
     Route: 065
     Dates: start: 202112, end: 202201
  4. LORLATINIB [Suspect]
     Active Substance: LORLATINIB
     Indication: Chemotherapy
     Dosage: UNK
     Route: 065
     Dates: start: 202112, end: 202201
  5. BEVACIZUMAB [Concomitant]
     Active Substance: BEVACIZUMAB
     Indication: Chemotherapy
     Dosage: UNK  (1 CYCLE)
     Route: 065

REACTIONS (1)
  - Drug intolerance [Fatal]
